APPROVED DRUG PRODUCT: DOXYCYCLINE
Active Ingredient: DOXYCYCLINE
Strength: EQ 150MG BASE
Dosage Form/Route: CAPSULE;ORAL
Application: A065055 | Product #003 | TE Code: AB
Applicant: STRIDES PHARMA INTERNATIONAL AG
Approved: Jul 15, 2005 | RLD: No | RS: Yes | Type: RX